FAERS Safety Report 8364692-7 (Version None)
Quarter: 2012Q2

REPORT INFORMATION
  Report Type: 
  Country: None (occurrence: None)
  Receive Date: 20120516
  Receipt Date: 20120511
  Transmission Date: 20120825
  Serious: Yes (Death, Life-Threatening, Hospitalization)
  Sender: FDA-Public Use
  Company Number: FR-ROCHE-732010

PATIENT
  Sex: Male
  Weight: 74 kg

DRUGS (3)
  1. PEGASYS [Suspect]
     Indication: HEPATITIS C
     Route: 058
     Dates: start: 20100701, end: 20100923
  2. COPEGUS [Suspect]
     Indication: HEPATITIS C
     Route: 048
     Dates: start: 20100701, end: 20100928
  3. TELAPREVIR [Suspect]
     Indication: HEPATITIS C
     Dosage: FREQUENCY EVERY 8 HOUR, Q8H
     Route: 048
     Dates: start: 20100701, end: 20100923

REACTIONS (1)
  - MYOCARDIAL INFARCTION [None]
